FAERS Safety Report 23695225 (Version 2)
Quarter: 2024Q4

REPORT INFORMATION
  Report Type: Spontaneous
  Country: CA (occurrence: CA)
  Receive Date: 20240402
  Receipt Date: 20241212
  Transmission Date: 20250115
  Serious: Yes (Other)
  Sender: ACCORD
  Company Number: None

PATIENT
  Weight: 2 kg

DRUGS (10)
  1. HYDROXYCHLOROQUINE [Suspect]
     Active Substance: HYDROXYCHLOROQUINE
     Indication: Product used for unknown indication
     Route: 064
  2. METHOTREXATE SODIUM [Suspect]
     Active Substance: METHOTREXATE SODIUM
     Indication: Product used for unknown indication
     Route: 064
  3. CHOLESTYRAMINE [Suspect]
     Active Substance: CHOLESTYRAMINE
     Indication: Product used for unknown indication
     Route: 064
  4. FOLIC ACID [Suspect]
     Active Substance: FOLIC ACID
     Indication: Product used for unknown indication
     Route: 064
  5. IRON [Suspect]
     Active Substance: IRON
     Indication: Product used for unknown indication
     Route: 064
  6. LABETALOL [Suspect]
     Active Substance: LABETALOL
     Indication: Product used for unknown indication
     Route: 064
  7. LEFLUNOMIDE [Suspect]
     Active Substance: LEFLUNOMIDE
     Indication: Product used for unknown indication
     Route: 064
  8. NIFEDIPINE [Suspect]
     Active Substance: NIFEDIPINE
     Indication: Product used for unknown indication
     Dosage: EXTENDED- RELEASE
     Route: 064
  9. SULFASALAZINE [Suspect]
     Active Substance: SULFASALAZINE
     Indication: Product used for unknown indication
     Route: 064
  10. SULFASALAZINE [Suspect]
     Active Substance: SULFASALAZINE
     Indication: Product used for unknown indication
     Route: 064

REACTIONS (3)
  - Foetal exposure during pregnancy [Unknown]
  - Foetal heart rate abnormal [Unknown]
  - Low birth weight baby [Unknown]
